FAERS Safety Report 7629254-5 (Version None)
Quarter: 2011Q3

REPORT INFORMATION
  Report Type: 
  Country: None (occurrence: None)
  Receive Date: 20110722
  Receipt Date: 20110719
  Transmission Date: 20111222
  Serious: Yes (Death)
  Sender: FDA-Public Use
  Company Number: JP-PFIZER INC-2011151749

PATIENT
  Age: 76 Year
  Sex: Female

DRUGS (10)
  1. XYLOCAINE [Suspect]
     Indication: COUGH
     Dosage: 3 ML, 1X/DAY
     Route: 030
     Dates: start: 20110705
  2. RULID [Concomitant]
     Indication: COUGH
     Dosage: 150 MG, 2X/DAY
     Route: 048
     Dates: start: 20110627, end: 20110701
  3. CEFOBID [Suspect]
     Dosage: 1 G, 1X/DAY
     Route: 030
     Dates: start: 20110705
  4. LYSOZYME HYDROCHLORIDE [Concomitant]
     Indication: COUGH
     Dosage: 90 MG, 2X/DAY
     Route: 048
     Dates: start: 20110627, end: 20110701
  5. ASVERIN [Concomitant]
     Indication: COUGH
     Dosage: 20 MG, 3X/DAY
     Route: 048
     Dates: start: 20110624, end: 20110629
  6. CEFOBID [Suspect]
     Dosage: 1 G, 1X/DAY
     Route: 030
     Dates: start: 20110624
  7. XYLOCAINE [Suspect]
     Indication: PAIN
     Dosage: 3 ML, 1X/DAY
     Route: 030
     Dates: start: 20110624
  8. LEVOFLOXACIN [Concomitant]
     Indication: COUGH
     Dosage: 100 MG, 3X/DAY
     Route: 048
     Dates: start: 20110624, end: 20110629
  9. SURGAM [Concomitant]
     Indication: COUGH
     Dosage: 200 MG, 3X/DAY
     Route: 048
     Dates: start: 20110624, end: 20110629
  10. LOXOPROFEN [Concomitant]
     Indication: COUGH
     Dosage: 60 MG, 1X/DAY
     Route: 048
     Dates: start: 20110627

REACTIONS (2)
  - RESPIRATORY ARREST [None]
  - SHOCK [None]
